FAERS Safety Report 24222500 (Version 1)
Quarter: 2024Q3

REPORT INFORMATION
  Report Type: Other
  Country: IT (occurrence: IT)
  Receive Date: 20240819
  Receipt Date: 20240819
  Transmission Date: 20241016
  Serious: Yes (Hospitalization)
  Sender: BIOCON
  Company Number: None

PATIENT

DRUGS (6)
  1. OGIVRI [Suspect]
     Active Substance: TRASTUZUMAB-DKST
     Indication: Adenocarcinoma gastric
     Dosage: 776 MILLIGRAM
     Route: 042
     Dates: start: 20240720, end: 20240720
  2. OMEPRAZOLE [Concomitant]
     Active Substance: OMEPRAZOLE
     Indication: Product used for unknown indication
     Route: 048
  3. ALLOPURINOL [Concomitant]
     Active Substance: ALLOPURINOL
     Indication: Hyperuricaemia
     Route: 048
  4. BRIMONIDINE TARTRATE [Concomitant]
     Active Substance: BRIMONIDINE TARTRATE
     Indication: Glaucoma
     Dosage: 0.2 PERCENT 1 DROP PER DAY AT 8:00 PM IN THE LEFT EYE
     Route: 061
  5. TAFLUPROST;TIMOLOL [Concomitant]
     Indication: Glaucoma
     Dosage: 15 MICROGRAM TAFLUPROST/TIMOLOL 15 MCG/5 MG/ML, 1 DROP PER DAY IN THE LEFT EYE AT 8:00 AM
     Route: 061
  6. TAFLUPROST;TIMOLOL [Concomitant]
     Dosage: 5 MILLIGRAM PER MILLILITRE TAFLUPROST/TIMOLOL 15 MCG/5 MG/ML, 1 DROP PER DAY IN THE LEFT EYE AT 8:00
     Route: 061

REACTIONS (6)
  - Cold sweat [Recovered/Resolved]
  - Retching [Recovered/Resolved]
  - Sense of oppression [Recovered/Resolved]
  - Feeling hot [Recovered/Resolved]
  - Nausea [Recovered/Resolved]
  - Chills [Recovered/Resolved]

NARRATIVE: CASE EVENT DATE: 20240720
